FAERS Safety Report 18981766 (Version 4)
Quarter: 2021Q4

REPORT INFORMATION
  Report Type: Spontaneous
  Country: US (occurrence: US)
  Receive Date: 20210308
  Receipt Date: 20211108
  Transmission Date: 20220304
  Serious: No
  Sender: FDA-Public Use
  Company Number: US-PFIZER INC-2021222416

PATIENT
  Age: 44 Year
  Sex: Male
  Weight: 151.02 kg

DRUGS (20)
  1. IBRANCE [Suspect]
     Active Substance: PALBOCICLIB
     Indication: Breast cancer male
     Dosage: 125 MG, CYCLIC (DAILY 3 WEEKS ON 1 WEEK OFF))
     Route: 048
     Dates: start: 20210207
  2. IBRANCE [Suspect]
     Active Substance: PALBOCICLIB
     Dosage: 125 MG, (DAILY FOR 21 DAYS)
     Route: 048
     Dates: start: 20210207
  3. IBRANCE [Suspect]
     Active Substance: PALBOCICLIB
     Dosage: 125MG (3 WEEKS ON THEN 1 WEEK OFF)
     Route: 048
     Dates: start: 20210207
  4. VITAMIN C + ZINK [Concomitant]
     Dosage: UNK
  5. VITAMIN D3 [Concomitant]
     Active Substance: CHOLECALCIFEROL
     Dosage: UNK
  6. METFORMIN HYDROCHLORIDE [Concomitant]
     Active Substance: METFORMIN HYDROCHLORIDE
     Dosage: 1000 MG
  7. JANUVIA [Concomitant]
     Active Substance: SITAGLIPTIN PHOSPHATE
     Dosage: 100 MG
  8. GLYBURIDE [Concomitant]
     Active Substance: GLYBURIDE
     Dosage: 5 MG
  9. LISINOPRIL [Concomitant]
     Active Substance: LISINOPRIL
     Dosage: 10 MG
  10. LANTUS [Concomitant]
     Active Substance: INSULIN GLARGINE
     Dosage: 100 ML
  11. TAMOXIFEN CITRATE [Concomitant]
     Active Substance: TAMOXIFEN CITRATE
     Dosage: 20 MG
  12. ONDANSETRON HCL [Concomitant]
     Active Substance: ONDANSETRON HYDROCHLORIDE
     Dosage: 8 MG
  13. DEXAMETHASONE [Concomitant]
     Active Substance: DEXAMETHASONE
     Dosage: 4 MG
  14. VITAMIN C [Concomitant]
     Active Substance: ASCORBIC ACID
     Indication: Haemoglobin decreased
     Dosage: UNK
  15. ZINC [Concomitant]
     Active Substance: ZINC
     Dosage: UNK
  16. SULFAMETHOXAZOLE [Concomitant]
     Active Substance: SULFAMETHOXAZOLE
     Dosage: UNK
  17. IRON [Concomitant]
     Active Substance: IRON
     Indication: Haemoglobin decreased
     Dosage: UNK
  18. VITAMIN C + E [Concomitant]
     Dosage: UNK
  19. CHOLECALCIFEROL [Concomitant]
     Active Substance: CHOLECALCIFEROL
     Dosage: UNK
  20. SULFAMETHOXAZOLE AND TRIMETHOPRIM [Concomitant]
     Active Substance: SULFAMETHOXAZOLE\TRIMETHOPRIM
     Dosage: UNK

REACTIONS (7)
  - Nausea [Recovering/Resolving]
  - Gastrointestinal disorder [Unknown]
  - Vertigo [Recovered/Resolved]
  - Dyspnoea [Unknown]
  - Fatigue [Recovering/Resolving]
  - Haemoglobin decreased [Recovering/Resolving]
  - Anaemia [Recovered/Resolved]

NARRATIVE: CASE EVENT DATE: 20210323
